FAERS Safety Report 6723807-4 (Version None)
Quarter: 2010Q2

REPORT INFORMATION
  Report Type: 
  Country: None (occurrence: None)
  Receive Date: 20100513
  Receipt Date: 20100212
  Transmission Date: 20101027
  Serious: No
  Sender: FDA-Public Use
  Company Number: A0844269A

PATIENT
  Age: 51 Year
  Sex: Female

DRUGS (2)
  1. TREXIMET [Suspect]
     Indication: MIGRAINE
     Route: 048
     Dates: start: 20100209
  2. AMOXICILLIN [Concomitant]

REACTIONS (1)
  - ABDOMINAL PAIN UPPER [None]
